FAERS Safety Report 10730242 (Version 4)
Quarter: 2015Q4

REPORT INFORMATION
  Report Type: Spontaneous
  Country: US (occurrence: US)
  Receive Date: 20150122
  Receipt Date: 20151028
  Transmission Date: 20160304
  Serious: Yes (Disabling)
  Sender: FDA-Public Use
  Company Number: US-009507513-1204USA03741

PATIENT
  Sex: Male
  Weight: 80.27 kg

DRUGS (2)
  1. PROPECIA [Suspect]
     Active Substance: FINASTERIDE
     Indication: ALOPECIA
     Dosage: 1 MG, QD
     Route: 048
     Dates: start: 200006, end: 200906
  2. PROSCAR [Suspect]
     Active Substance: FINASTERIDE
     Dosage: 5 MG, UNK
     Route: 048
     Dates: start: 20010602, end: 20020216

REACTIONS (41)
  - Ejaculation disorder [Not Recovered/Not Resolved]
  - Ejaculation failure [Not Recovered/Not Resolved]
  - Abdominal pain [Unknown]
  - Helicobacter gastritis [Unknown]
  - Chronic obstructive pulmonary disease [Not Recovered/Not Resolved]
  - Dyspepsia [Unknown]
  - Sensory loss [Unknown]
  - Orgasm abnormal [Unknown]
  - Sexual dysfunction [Not Recovered/Not Resolved]
  - Erectile dysfunction [Not Recovered/Not Resolved]
  - Arthropathy [Unknown]
  - Testicular mass [Unknown]
  - Testicular disorder [Unknown]
  - Generalised anxiety disorder [Not Recovered/Not Resolved]
  - Cognitive disorder [Not Recovered/Not Resolved]
  - Chest pain [Unknown]
  - Infection [Unknown]
  - Bone loss [Unknown]
  - Finger amputation [Unknown]
  - Disturbance in attention [Unknown]
  - Visual impairment [Unknown]
  - Sperm concentration decreased [Unknown]
  - Sexual dysfunction [Not Recovered/Not Resolved]
  - Weight decreased [Unknown]
  - Photophobia [Recovering/Resolving]
  - Palpitations [Unknown]
  - Asthenia [Not Recovered/Not Resolved]
  - Thyroid disorder [Unknown]
  - Fatigue [Not Recovered/Not Resolved]
  - Liver function test abnormal [Unknown]
  - Loss of libido [Not Recovered/Not Resolved]
  - Mental impairment [Unknown]
  - Muscular weakness [Unknown]
  - Sleep disorder [Unknown]
  - Depression [Not Recovered/Not Resolved]
  - Memory impairment [Not Recovered/Not Resolved]
  - Hypogonadism [Not Recovered/Not Resolved]
  - Palatal disorder [Unknown]
  - Limb operation [Unknown]
  - Gastric disorder [Unknown]
  - Spermatozoa abnormal [Unknown]

NARRATIVE: CASE EVENT DATE: 200212
